FAERS Safety Report 4499620-8 (Version None)
Quarter: 2004Q4

REPORT INFORMATION
  Report Type: 
  Country: None (occurrence: None)
  Receive Date: 20041110
  Receipt Date: 20041110
  Transmission Date: 20050328
  Serious: Yes (Other)
  Sender: FDA-Public Use
  Company Number: None

PATIENT
  Age: 62 Year
  Sex: Male

DRUGS (2)
  1. ZOLPIDEM 10MG [Suspect]
     Indication: INSOMNIA
     Dosage: 10MG QHS PRN ORAL
     Route: 048
     Dates: start: 20040414, end: 20040414
  2. LORAZEPAM [Suspect]
     Indication: ANXIETY
     Dosage: 0.5MG  Q4-6H INTRAVENOUS
     Route: 042
     Dates: start: 20040414, end: 20040414

REACTIONS (4)
  - ABNORMAL BEHAVIOUR [None]
  - CONFUSIONAL STATE [None]
  - DISORIENTATION [None]
  - RESTLESSNESS [None]
